FAERS Safety Report 5081053-7 (Version None)
Quarter: 2006Q3

REPORT INFORMATION
  Report Type: 
  Country: None (occurrence: None)
  Receive Date: 20060816
  Receipt Date: 20060811
  Transmission Date: 20061208
  Serious: Yes (Death, Hospitalization)
  Sender: FDA-Public Use
  Company Number: PHBS2006DE12201

PATIENT
  Age: 22 Year
  Sex: Female

DRUGS (2)
  1. LEVETIRACETAM [Suspect]
     Indication: CONVULSION
     Route: 065
  2. CARBAMAZEPINE [Suspect]
     Indication: CONVULSION
     Route: 065

REACTIONS (7)
  - CONVULSION [None]
  - HEPATIC FAILURE [None]
  - HEPATIC NECROSIS [None]
  - HEPATOCELLULAR DAMAGE [None]
  - POISONING [None]
  - RENAL TUBULAR NECROSIS [None]
  - SHOCK [None]
